FAERS Safety Report 5207535-2 (Version None)
Quarter: 2006Q4

REPORT INFORMATION
  Report Type: 
  Country: None (occurrence: None)
  Receive Date: 20061030
  Receipt Date: 20060626
  Transmission Date: 20070319
  Serious: No
  Sender: FDA-Public Use
  Company Number: 2006CT000646

PATIENT
  Age: 62 Year
  Sex: Female
  Weight: 88 kg

DRUGS (9)
  1. VENTAVIS [Suspect]
     Indication: PULMONARY HYPERTENSION
     Dosage: 5 UG; 6XD; INH
     Route: 055
     Dates: start: 20050712
  2. LASIX [Concomitant]
  3. WARFARIN SODIUM [Concomitant]
  4. LANOXIN [Concomitant]
  5. ALBUTEROL [Concomitant]
  6. ADVAIR DISKUS 100/50 [Concomitant]
  7. SINGULAIR [Concomitant]
  8. SITAXSENTAN [Concomitant]
  9. OXYGEN [Concomitant]

REACTIONS (1)
  - ARTHRALGIA [None]
